FAERS Safety Report 12276812 (Version 3)
Quarter: 2016Q2

REPORT INFORMATION
  Report Type: Spontaneous
  Country: FR (occurrence: FR)
  Receive Date: 20160418
  Receipt Date: 20160513
  Transmission Date: 20160815
  Serious: Yes (Hospitalization, Other)
  Sender: FDA-Public Use
  Company Number: FR-BRISTOL-MYERS SQUIBB COMPANY-BMS-2016-027597

PATIENT
  Age: 55 Year
  Sex: Female
  Weight: 54 kg

DRUGS (10)
  1. OXYCONTIN [Concomitant]
     Active Substance: OXYCODONE HYDROCHLORIDE
     Indication: PAIN
     Dosage: 50 MG, BID
     Route: 065
  2. TAZOCILLINE [Concomitant]
     Active Substance: PIPERACILLIN SODIUM\TAZOBACTAM SODIUM
     Indication: SEPSIS
     Dosage: 1 G, TID
     Route: 042
     Dates: start: 20160401, end: 20160408
  3. OPDIVO [Suspect]
     Active Substance: NIVOLUMAB
     Indication: LUNG ADENOCARCINOMA METASTATIC
     Dosage: 160 MG, UNK
     Route: 042
     Dates: start: 20160323
  4. INEXIUM                            /01479302/ [Concomitant]
     Active Substance: ESOMEPRAZOLE MAGNESIUM
     Indication: PRODUCT USED FOR UNKNOWN INDICATION
     Dosage: 40 MG, QD
     Route: 048
  5. FLUDROCORTISONE [Concomitant]
     Active Substance: FLUDROCORTISONE
     Indication: ADRENAL INSUFFICIENCY
     Dosage: 50 MG, BID
     Route: 065
  6. THIOCOLCHICOSIDE [Concomitant]
     Active Substance: THIOCOLCHICOSIDE
     Indication: MUSCLE CONTRACTURE
     Dosage: 2 TAB, BID
     Route: 048
     Dates: end: 20160407
  7. BI-PROFENID [Concomitant]
     Active Substance: KETOPROFEN
     Indication: ARTHRALGIA
     Dosage: 1 TAB, BID
     Route: 048
     Dates: start: 20160402, end: 20160407
  8. DAFALGAN [Concomitant]
     Active Substance: ACETAMINOPHEN
     Indication: PAIN
     Dosage: 1 G, QID
     Route: 065
  9. PRIMPERAN [Concomitant]
     Active Substance: METOCLOPRAMIDE HYDROCHLORIDE
     Indication: NAUSEA
     Dosage: 1 TAB, TID
     Route: 048
     Dates: start: 20160408
  10. OPDIVO [Suspect]
     Active Substance: NIVOLUMAB
     Indication: NON-SMALL CELL LUNG CANCER

REACTIONS (3)
  - Encephalopathy [Recovered/Resolved]
  - Sepsis [Unknown]
  - Toxic skin eruption [Recovering/Resolving]

NARRATIVE: CASE EVENT DATE: 20160401
